FAERS Safety Report 25166568 (Version 3)
Quarter: 2025Q2

REPORT INFORMATION
  Report Type: Report from Study
  Country: PH (occurrence: PH)
  Receive Date: 20250407
  Receipt Date: 20250505
  Transmission Date: 20250716
  Serious: Yes (Death, Hospitalization, Other)
  Sender: TAKEDA
  Company Number: PH-TAKEDA-2024TUS097126

PATIENT
  Age: 48 Year
  Sex: Female

DRUGS (6)
  1. BRIGATINIB [Suspect]
     Active Substance: BRIGATINIB
     Indication: Non-small cell lung cancer
     Dosage: 90 MILLIGRAM, QD
     Dates: start: 20240428
  2. BRIGATINIB [Suspect]
     Active Substance: BRIGATINIB
     Dosage: 90 MILLIGRAM, BID
     Dates: start: 20241128, end: 20250127
  3. BRIGATINIB [Suspect]
     Active Substance: BRIGATINIB
     Dosage: 90 MILLIGRAM, BID
     Dates: start: 20250317, end: 20250402
  4. OSIMERTINIB [Suspect]
     Active Substance: OSIMERTINIB
     Indication: Non-small cell lung cancer
     Dosage: UNK UNK, QOD
  5. PREGABALIN [Concomitant]
     Active Substance: PREGABALIN
  6. TRAMADOL [Concomitant]
     Active Substance: TRAMADOL

REACTIONS (11)
  - Death [Fatal]
  - Decreased immune responsiveness [Recovered/Resolved with Sequelae]
  - Gene mutation [Not Recovered/Not Resolved]
  - Dyspnoea [Recovered/Resolved with Sequelae]
  - Asthenia [Recovered/Resolved with Sequelae]
  - Abdominal distension [Not Recovered/Not Resolved]
  - Drug resistance [Recovered/Resolved]
  - Product availability issue [Not Recovered/Not Resolved]
  - Arthralgia [Not Recovered/Not Resolved]
  - Rash erythematous [Not Recovered/Not Resolved]
  - Peripheral swelling [Not Recovered/Not Resolved]

NARRATIVE: CASE EVENT DATE: 20241001
